FAERS Safety Report 10425129 (Version 3)
Quarter: 2014Q4

REPORT INFORMATION
  Report Type: Spontaneous
  Country: JP (occurrence: JP)
  Receive Date: 20140902
  Receipt Date: 20141126
  Transmission Date: 20150528
  Serious: Yes (Hospitalization, Other)
  Sender: FDA-Public Use
  Company Number: JP-GLAXOSMITHKLINE-B1028415A

PATIENT
  Age: 83 Year
  Sex: Female
  Weight: 54.6 kg

DRUGS (12)
  1. AMLODIPINE [Concomitant]
     Active Substance: AMLODIPINE BESYLATE
  2. AMARYL [Concomitant]
     Active Substance: GLIMEPIRIDE
  3. LOXONIN [Suspect]
     Active Substance: LOXOPROFEN SODIUM
     Indication: PAIN
     Dosage: 60 MG, BID
     Route: 048
     Dates: start: 20140818, end: 20140821
  4. VALACICLOVIR HYDROCHLORIDE [Suspect]
     Active Substance: VALACYCLOVIR HYDROCHLORIDE
     Indication: HERPES ZOSTER
     Route: 048
     Dates: start: 20140818, end: 20140821
  5. AROTINOLOL HYDROCHLORIDE [Concomitant]
     Active Substance: AROTINOLOL HYDROCHLORIDE
  6. LIVALO [Concomitant]
     Active Substance: PITAVASTATIN CALCIUM
  7. METFORMIN HYDROCHLORIDE. [Concomitant]
     Active Substance: METFORMIN HYDROCHLORIDE
     Indication: TYPE 2 DIABETES MELLITUS
     Dosage: UNK
  8. RAIPECK [Suspect]
     Active Substance: ETODOLAC
     Indication: PAIN IN EXTREMITY
     Dosage: 200 MG, BID
     Route: 048
     Dates: end: 20140818
  9. NATRIX [Concomitant]
     Active Substance: INDAPAMIDE
  10. EXFORGE [Concomitant]
     Active Substance: AMLODIPINE BESYLATE\VALSARTAN
     Dosage: UNK
  11. METGLUCO [Concomitant]
     Active Substance: METFORMIN HYDROCHLORIDE
  12. GLACTIV [Concomitant]
     Active Substance: SITAGLIPTIN

REACTIONS (5)
  - Dysarthria [Recovering/Resolving]
  - Blood creatinine increased [Unknown]
  - Renal failure [Recovering/Resolving]
  - Renal disorder [Recovering/Resolving]
  - Malaise [Unknown]

NARRATIVE: CASE EVENT DATE: 20140821
